FAERS Safety Report 6014195-X (Version None)
Quarter: 2008Q4

REPORT INFORMATION
  Report Type: 
  Country: None (occurrence: None)
  Receive Date: 20081219
  Receipt Date: 20080211
  Transmission Date: 20090506
  Serious: No
  Sender: FDA-Public Use
  Company Number: A0708699A

PATIENT
  Age: 75 Year
  Sex: Male

DRUGS (8)
  1. AVODART [Suspect]
     Indication: DRUG USE FOR UNKNOWN INDICATION
     Dosage: .5MG PER DAY
     Route: 048
     Dates: start: 20070301
  2. ATENOLOL [Concomitant]
  3. PROCARDIA [Concomitant]
  4. WELCHOL [Concomitant]
  5. ZETIA [Concomitant]
  6. TERAZOSIN HCL [Concomitant]
  7. TRICOR [Concomitant]
  8. ASPIRIN [Concomitant]

REACTIONS (1)
  - DRUG INEFFECTIVE [None]
